FAERS Safety Report 26063195 (Version 1)
Quarter: 2025Q4

REPORT INFORMATION
  Report Type: Spontaneous
  Country: GB (occurrence: GB)
  Receive Date: 20251119
  Receipt Date: 20251119
  Transmission Date: 20260118
  Serious: Yes (Other)
  Sender: AUROBINDO
  Company Number: GB-MHRA-MED-202511101609266910-QZYRJ

PATIENT
  Age: 24 Year
  Sex: Female

DRUGS (1)
  1. FLUOXETINE [Suspect]
     Active Substance: FLUOXETINE HYDROCHLORIDE
     Indication: Anxiety
     Dosage: 20 MILLIGRAM
     Route: 065
     Dates: start: 20250916, end: 20251107

REACTIONS (1)
  - Heart rate [Recovered/Resolved]

NARRATIVE: CASE EVENT DATE: 20251107
